FAERS Safety Report 11330479 (Version 1)
Quarter: 2015Q3

REPORT INFORMATION
  Report Type: Spontaneous
  Country: US (occurrence: None)
  Receive Date: 20150731
  Receipt Date: 20150731
  Transmission Date: 20151125
  Serious: Yes (Death, Life-Threatening, Hospitalization)
  Sender: FDA-Public Use
  Company Number: None

PATIENT
  Age: 68 Year
  Sex: Female
  Weight: 51.2 kg

DRUGS (3)
  1. APIXABAN [Suspect]
     Active Substance: APIXABAN
  2. ASPIRIN. [Concomitant]
     Active Substance: ASPIRIN
  3. AMIODARONE [Concomitant]
     Active Substance: AMIODARONE

REACTIONS (8)
  - Hypophagia [None]
  - Haemorrhage [None]
  - Gastrointestinal haemorrhage [None]
  - Acute kidney injury [None]
  - Acidosis [None]
  - Dehydration [None]
  - Cardiac arrest [None]
  - Ventricular fibrillation [None]

NARRATIVE: CASE EVENT DATE: 20150505
